FAERS Safety Report 8814554 (Version 1)
Quarter: 2012Q4

REPORT INFORMATION
  Report Type: Spontaneous
  Country: US (occurrence: None)
  Receive Date: 20120926
  Receipt Date: 20120926
  Transmission Date: 20130627
  Serious: Yes (Hospitalization)
  Sender: FDA-Public Use
  Company Number: B0832626A

PATIENT
  Age: 44 Year
  Sex: Female

DRUGS (2)
  1. LAMOTRIGINE [Suspect]
     Indication: SCHIZOPHRENIA
  2. CLOZAPINE [Suspect]
     Indication: SCHIZOPHRENIA

REACTIONS (6)
  - Drug interaction [None]
  - Dizziness [None]
  - Musculoskeletal stiffness [None]
  - Pyrexia [None]
  - Blood creatine phosphokinase increased [None]
  - Rash [None]
